FAERS Safety Report 23789234 (Version 1)
Quarter: 2024Q2

REPORT INFORMATION
  Report Type: Spontaneous
  Country: US (occurrence: None)
  Receive Date: 20240425
  Receipt Date: 20240425
  Transmission Date: 20240716
  Serious: Yes (Other)
  Sender: FDA-Public Use
  Company Number: None

PATIENT
  Age: 49 Year
  Sex: Female
  Weight: 69.3 kg

DRUGS (1)
  1. MELOXICAM [Suspect]
     Active Substance: MELOXICAM
     Indication: Arthralgia
     Dosage: FREQUENCY : DAILY;?
     Route: 048
     Dates: start: 20240315, end: 20240322

REACTIONS (3)
  - Pain [None]
  - Arthralgia [None]
  - Iritis [None]

NARRATIVE: CASE EVENT DATE: 20240315
